FAERS Safety Report 6972509-8 (Version None)
Quarter: 2010Q3

REPORT INFORMATION
  Report Type: 
  Country: None (occurrence: None)
  Receive Date: 20100824
  Receipt Date: 20100505
  Transmission Date: 20110219
  Serious: No
  Sender: FDA-Public Use
  Company Number: 308634

PATIENT
  Age: 60 Year
  Sex: Male

DRUGS (5)
  1. VICTOZA [Suspect]
     Indication: TYPE 2 DIABETES MELLITUS
     Dosage: SUBCUTANEOUS
     Route: 058
  2. ACTOS [Concomitant]
  3. BENICAR [Concomitant]
  4. NEURONTIN [Concomitant]
  5. CLARITIN /00413701/ (GLICLAZIDE) [Concomitant]

REACTIONS (1)
  - RASH PRURITIC [None]
